FAERS Safety Report 5742397-6 (Version None)
Quarter: 2008Q2

REPORT INFORMATION
  Report Type: 
  Country: None (occurrence: None)
  Receive Date: 20080519
  Receipt Date: 20080505
  Transmission Date: 20081010
  Serious: Yes (Hospitalization)
  Sender: FDA-Public Use
  Company Number: US-ELI_LILLY_AND_COMPANY-US200804003414

PATIENT
  Age: 88 Year
  Sex: Female
  Weight: 58.957 kg

DRUGS (10)
  1. FORTEO [Suspect]
     Indication: OSTEOPOROSIS
     Dosage: 20 UG, DAILY (1/D)
     Dates: start: 20071201, end: 20080411
  2. CALCITONIN [Concomitant]
     Dosage: ONE SPRAY EACH NOSTRIL DAILY
     Route: 045
  3. NEXIUM [Concomitant]
     Dosage: 40 MG, DAILY (1/D)
  4. LEVOTHYROXINE SODIUM [Concomitant]
     Dosage: 100 UG, DAILY (1/D)
  5. NEURONTIN [Concomitant]
     Dosage: 100 MG, 3/D
  6. TOPROL-XL [Concomitant]
     Dosage: 25 MG, 3/D
  7. SINGULAIR [Concomitant]
     Dosage: 10 MG, DAILY (1/D)
  8. VESICARE [Concomitant]
     Dosage: 10 MG, DAILY (1/D)
  9. DIOVAN [Concomitant]
     Dosage: UNK, DAILY (1/D)
  10. HYDROCHLORZIDE [Concomitant]

REACTIONS (11)
  - APPETITE DISORDER [None]
  - ASTHMA [None]
  - ATELECTASIS [None]
  - BACTERAEMIA [None]
  - DEHYDRATION [None]
  - DIZZINESS [None]
  - HYPOGLYCAEMIA [None]
  - MYOCARDIAL INFARCTION [None]
  - OESOPHAGEAL DISORDER [None]
  - PNEUMONIA [None]
  - WEIGHT DECREASED [None]
